FAERS Safety Report 5661706-X (Version None)
Quarter: 2008Q1

REPORT INFORMATION
  Report Type: 
  Country: None (occurrence: None)
  Receive Date: 20080312
  Receipt Date: 20080311
  Transmission Date: 20080703
  Serious: Yes (Other)
  Sender: FDA-Public Use
  Company Number: A0715003A

PATIENT
  Age: 20 Year
  Sex: Female

DRUGS (6)
  1. WELLBUTRIN XL [Suspect]
     Indication: DEPRESSION
     Dosage: 300MG PER DAY
     Route: 048
     Dates: end: 20080220
  2. PROZAC [Concomitant]
     Dosage: 20MG PER DAY
     Route: 048
     Dates: end: 20080220
  3. ALPRAZOLAM [Concomitant]
     Route: 048
     Dates: end: 20080220
  4. SEROQUEL [Concomitant]
     Dosage: 300MG PER DAY
     Route: 048
  5. TEMAZEPAM [Concomitant]
     Dosage: 15MG PER DAY
     Route: 048
  6. DEXEDRINE [Concomitant]
     Dosage: 15MG PER DAY
     Route: 048

REACTIONS (1)
  - CONVULSION [None]
